FAERS Safety Report 8518577-3 (Version None)
Quarter: 2012Q3

REPORT INFORMATION
  Report Type: 
  Country: None (occurrence: None)
  Receive Date: 20120718
  Receipt Date: 20120525
  Transmission Date: 20120928
  Serious: No
  Sender: FDA-Public Use
  Company Number: US-BRISTOL-MYERS SQUIBB COMPANY-16631319

PATIENT
  Sex: Female

DRUGS (15)
  1. COUMADIN [Suspect]
     Dosage: 2.5MG (HALF A TABLET) ON FRIDAYS
     Dates: start: 20050101
  2. DOCOSAHEXAENOIC ACID [Concomitant]
  3. VITAMIN B-12 [Concomitant]
  4. COQ10 [Concomitant]
  5. VITAMIN D [Concomitant]
  6. WARFARIN SODIUM [Suspect]
  7. NIACIN [Concomitant]
  8. FOLIC ACID [Concomitant]
  9. LOVAZA [Concomitant]
  10. ASCORBIC ACID [Concomitant]
  11. ALEVE [Concomitant]
     Dosage: LIQUID GELS
  12. VITAMIN E [Concomitant]
  13. MULTI-VITAMINS [Concomitant]
  14. VITAMIN B COMPLEX + C [Concomitant]
  15. GLUCOSAMINE SULFATE + MSM [Concomitant]

REACTIONS (3)
  - CHEST PAIN [None]
  - HEADACHE [None]
  - FALL [None]
